FAERS Safety Report 8908487 (Version 1)
Quarter: 2012Q4

REPORT INFORMATION
  Report Type: 
  Country: US (occurrence: US)
  Receive Date: 20121114
  Receipt Date: 20121114
  Transmission Date: 20130627
  Serious: No
  Sender: FDA-Public Use
  Company Number: AL-ASTRAZENECA-2012SE80160

PATIENT
  Age: 49 Year
  Sex: Male
  Weight: 79.4 kg

DRUGS (2)
  1. SYMBICORT PMDI [Suspect]
     Indication: ASTHMA
     Route: 055
     Dates: start: 201111
  2. VENTOLIN [Concomitant]
     Indication: ASTHMA
     Route: 045
     Dates: start: 201210

REACTIONS (7)
  - Asthma [Unknown]
  - Increased upper airway secretion [Unknown]
  - Nocturnal dyspnoea [Unknown]
  - Chest discomfort [Unknown]
  - Throat irritation [Unknown]
  - Cough [Unknown]
  - Intentional drug misuse [Unknown]
